FAERS Safety Report 8809596 (Version 1)
Quarter: 2012Q4

REPORT INFORMATION
  Report Type: 
  Country: US (occurrence: US)
  Receive Date: 20120926
  Receipt Date: 20120926
  Transmission Date: 20130627
  Serious: Yes (Other)
  Sender: FDA-Public Use
  Company Number: US-ROCHE-1127879

PATIENT
  Age: 63 Year
  Sex: Female

DRUGS (3)
  1. AVASTIN [Suspect]
     Indication: BREAST CANCER FEMALE
     Route: 065
     Dates: end: 20080722
  2. ABRAXANE [Concomitant]
  3. GEMZAR [Concomitant]

REACTIONS (6)
  - Metastases to lung [Unknown]
  - Metastases to bone [Unknown]
  - Cellulitis [Unknown]
  - Breast cancer metastatic [Unknown]
  - Device related infection [Recovered/Resolved]
  - Metastases to lymph nodes [Unknown]
